FAERS Safety Report 8979162 (Version 2)
Quarter: 2013Q1

REPORT INFORMATION
  Report Type: Spontaneous
  Country: US (occurrence: US)
  Receive Date: 20121221
  Receipt Date: 20130114
  Transmission Date: 20140127
  Serious: Yes (Death)
  Sender: FDA-Public Use
  Company Number: US-GLAXOSMITHKLINE-A1006137A

PATIENT
  Age: 73 Year
  Sex: Female
  Weight: 38.2 kg

DRUGS (4)
  1. VOTRIENT [Suspect]
     Indication: METASTATIC RENAL CELL CARCINOMA
     Dosage: 800MG PER DAY
     Route: 048
     Dates: start: 20120728, end: 20120906
  2. DURAGESIC [Concomitant]
     Indication: PAIN
  3. DILAUDID [Concomitant]
     Indication: PAIN
  4. MORPHINE [Concomitant]
     Indication: PAIN
     Route: 060

REACTIONS (1)
  - Metastatic renal cell carcinoma [Fatal]
